FAERS Safety Report 4598306-9 (Version None)
Quarter: 2005Q2

REPORT INFORMATION
  Report Type: 
  Country: None (occurrence: None)
  Receive Date: 20050204
  Receipt Date: 20040614
  Transmission Date: 20051028
  Serious: Yes (Hospitalization)
  Sender: FDA-Public Use
  Company Number: PHEH2004US06516

PATIENT
  Age: 32 Year
  Sex: Male

DRUGS (2)
  1. CLOZARIL [Suspect]
     Indication: BIPOLAR DISORDER
     Dosage: ORAL
     Route: 048
     Dates: start: 19990101
  2. CLOZARIL [Suspect]
     Dosage: 225 MG, QD, ORAL
     Route: 048
     Dates: start: 20040614

REACTIONS (2)
  - DISEASE PROGRESSION [None]
  - LEUKOPENIA [None]
